FAERS Safety Report 26162224 (Version 1)
Quarter: 2025Q4

REPORT INFORMATION
  Report Type: Spontaneous
  Country: US (occurrence: US)
  Receive Date: 20251216
  Receipt Date: 20251216
  Transmission Date: 20260118
  Serious: Yes (Death)
  Sender: AMGEN
  Company Number: US-AMGEN-USASP2025244787

PATIENT

DRUGS (2)
  1. RITUXIMAB [Suspect]
     Active Substance: RITUXIMAB
     Indication: Acute megakaryocytic leukaemia
     Dosage: UNK
     Route: 065
  2. FLUDARABINE [Concomitant]
     Active Substance: FLUDARABINE PHOSPHATE

REACTIONS (5)
  - Infection [Fatal]
  - Acute megakaryocytic leukaemia [Fatal]
  - Social problem [Unknown]
  - Drug ineffective for unapproved indication [Unknown]
  - Off label use [Unknown]
